FAERS Safety Report 8043063-7 (Version None)
Quarter: 2012Q1

REPORT INFORMATION
  Report Type: 
  Country: None (occurrence: None)
  Receive Date: 20120112
  Receipt Date: 20120105
  Transmission Date: 20120608
  Serious: Yes (Death, Life-Threatening, Hospitalization, Other)
  Sender: FDA-Public Use
  Company Number: JP-PFIZER INC-2011308004

PATIENT
  Age: 60 Year
  Sex: Female
  Weight: 64 kg

DRUGS (21)
  1. LYRICA [Suspect]
     Dosage: 150 MG AND 75 MG/DAY
     Route: 048
     Dates: start: 20111121
  2. PREDNISOLONE [Concomitant]
     Dosage: 10 MG, 5 MG, AND 0 MG/DAY
     Route: 048
     Dates: start: 20110712, end: 20111101
  3. CODEINE PHOSPHATE [Concomitant]
     Indication: COUGH
     Dosage: 20 MG, 2X/DAY
     Route: 048
     Dates: start: 20110712
  4. SP TROCHE [Concomitant]
     Indication: OROPHARYNGEAL PAIN
     Dosage: UNK
     Dates: start: 20110906
  5. METHYCOBAL [Concomitant]
     Indication: POST HERPETIC NEURALGIA
     Dosage: 1 MG, 2X/DAY
     Route: 048
     Dates: start: 20110517
  6. LYRICA [Suspect]
     Indication: POST HERPETIC NEURALGIA
     Dosage: 75 MG, 2X/DAY
     Route: 048
     Dates: start: 20110502, end: 20110614
  7. MAGNESIUM OXIDE [Concomitant]
     Indication: CONSTIPATION
     Dosage: 0.75 G, 2X/DAY
     Route: 048
     Dates: start: 20110712
  8. VOLTAREN [Concomitant]
     Indication: POST HERPETIC NEURALGIA
     Dosage: UNK
     Route: 048
     Dates: start: 20110517
  9. LYRICA [Suspect]
     Dosage: 150 MG, 2X/DAY
     Route: 048
     Dates: start: 20110614, end: 20110906
  10. PREDNISOLONE [Concomitant]
     Indication: INTERSTITIAL LUNG DISEASE
     Dosage: 10 MG, 5 MG, AND 5MG/DAY
     Route: 048
     Dates: end: 20110712
  11. PREDNISOLONE [Concomitant]
     Dosage: 10 MG, 0 MG, AND 0 MG/DAY
     Route: 048
     Dates: start: 20111101
  12. DEPAS [Concomitant]
  13. CLARITHROMYCIN [Concomitant]
     Indication: COUGH
     Dosage: 200 MG, 1X/DAY
     Route: 048
     Dates: start: 20110712
  14. RISEDRONATE SODIUM [Concomitant]
     Indication: OSTEOPOROSIS
     Dosage: 17.5 MG, WEEKLY
     Route: 048
     Dates: start: 20110712
  15. FAMOTIDINE [Concomitant]
     Indication: GASTRIC ULCER
     Dosage: 20 MG, 2X/DAY
     Route: 048
     Dates: start: 20110712
  16. NEUROTROPIN [Concomitant]
     Indication: POST HERPETIC NEURALGIA
     Dosage: 8 IU, 2X/DAY
     Route: 048
     Dates: start: 20110502
  17. VALTREX [Concomitant]
     Indication: POST HERPETIC NEURALGIA
     Dosage: UNK
     Route: 048
     Dates: start: 20110505
  18. LYRICA [Suspect]
     Dosage: 75 MG, 2X/DAY
     Route: 048
     Dates: start: 20110906, end: 20111114
  19. LYRICA [Suspect]
     Dosage: 150 MG, 2X/DAY
     Route: 048
     Dates: start: 20111114, end: 20111121
  20. DEXTROMETHORPHAN HYDROBROMIDE [Concomitant]
     Indication: COUGH
     Dosage: 30 MG, 3X/DAY
     Route: 048
     Dates: start: 20110712
  21. INDOMETHACIN [Concomitant]
     Indication: POST HERPETIC NEURALGIA
     Dosage: 25 MG, 3X/DAY
     Route: 048
     Dates: start: 20110906

REACTIONS (5)
  - CARDIAC FAILURE CONGESTIVE [None]
  - RESPIRATORY ARREST [None]
  - OEDEMA PERIPHERAL [None]
  - PAIN IN EXTREMITY [None]
  - PRURITUS [None]
